FAERS Safety Report 21119690 (Version 2)
Quarter: 2022Q4

REPORT INFORMATION
  Report Type: Spontaneous
  Country: GB (occurrence: GB)
  Receive Date: 20220722
  Receipt Date: 20221014
  Transmission Date: 20230112
  Serious: Yes (Disabling, Other)
  Sender: FDA-Public Use
  Company Number: GB-AMGEN-GBRSP2022049656

PATIENT
  Sex: Female

DRUGS (1)
  1. ADALIMUMAB [Suspect]
     Active Substance: ADALIMUMAB
     Indication: Rheumatoid arthritis
     Dosage: 40 MILLIGRAM, Q2WK
     Route: 058

REACTIONS (2)
  - Rheumatoid arthritis [Unknown]
  - Tooth extraction [Unknown]
